FAERS Safety Report 9105323 (Version 1)
Quarter: 2013Q1

REPORT INFORMATION
  Report Type: Spontaneous
  Country: FR (occurrence: FR)
  Receive Date: 20130220
  Receipt Date: 20130220
  Transmission Date: 20140127
  Serious: Yes (Hospitalization, Other)
  Sender: FDA-Public Use
  Company Number: FR-BRISTOL-MYERS SQUIBB COMPANY-17378282

PATIENT
  Age: 80 Year
  Sex: Female

DRUGS (9)
  1. COUMADIN TABS 2 MG [Suspect]
     Indication: DEEP VEIN THROMBOSIS
     Route: 048
     Dates: start: 20120920, end: 20121030
  2. TAHOR [Interacting]
     Indication: DYSLIPIDAEMIA
     Route: 048
     Dates: start: 20121105
  3. INIPOMP [Concomitant]
     Route: 048
     Dates: start: 20121105
  4. LERCAN [Concomitant]
     Dosage: TABS
     Route: 048
     Dates: start: 20121105
  5. MIANSERIN [Concomitant]
  6. ALPRAZOLAM [Concomitant]
     Dosage: 1DF:0.25
  7. LASILIX [Concomitant]
  8. LEVOTHYROX [Concomitant]
     Dosage: 1DF=75 MICRO G/D
  9. LAROXYL [Concomitant]
     Indication: DEPRESSION
     Dates: start: 20121101

REACTIONS (5)
  - Haemarthrosis [Recovered/Resolved]
  - Dyspnoea exertional [Recovering/Resolving]
  - Drug interaction [Unknown]
  - Joint injury [Unknown]
  - Overdose [Unknown]
